FAERS Safety Report 9761804 (Version 1)
Quarter: 2013Q4

REPORT INFORMATION
  Report Type: Spontaneous
  Country: US (occurrence: US)
  Receive Date: 20131216
  Receipt Date: 20131216
  Transmission Date: 20140711
  Serious: No
  Sender: FDA-Public Use
  Company Number: US-BIOGENIDEC-2013BI102491

PATIENT
  Age: 69 Year
  Sex: Female

DRUGS (2)
  1. TECFIDERA [Suspect]
     Indication: PRODUCT USED FOR UNKNOWN INDICATION
     Route: 048
  2. TECFIDERA [Suspect]
     Indication: PRODUCT USED FOR UNKNOWN INDICATION
     Route: 048
     Dates: start: 20130823, end: 20130930

REACTIONS (4)
  - Underdose [Unknown]
  - Malaise [Unknown]
  - Nausea [Unknown]
  - Vomiting [Unknown]
